FAERS Safety Report 5831687-4 (Version None)
Quarter: 2008Q3

REPORT INFORMATION
  Report Type: 
  Country: None (occurrence: None)
  Receive Date: 20080730
  Receipt Date: 20080716
  Transmission Date: 20090109
  Serious: Yes (Life-Threatening, Hospitalization)
  Sender: FDA-Public Use
  Company Number: 2008AL008458

PATIENT
  Age: 78 Year
  Sex: Female
  Weight: 68.0396 kg

DRUGS (5)
  1. DIGOXIN [Suspect]
     Dosage: PO
     Route: 048
  2. CARBIDOPA AND LEVODOPA [Concomitant]
  3. DILTIAZEM HCL [Concomitant]
  4. LIPITOR [Concomitant]
  5. WARFARIN SODIUM [Concomitant]

REACTIONS (1)
  - CARDIAC DISORDER [None]
